FAERS Safety Report 4311305-7 (Version None)
Quarter: 2004Q1

REPORT INFORMATION
  Report Type: 
  Country: None (occurrence: None)
  Receive Date: 20040304
  Receipt Date: 20040227
  Transmission Date: 20041129
  Serious: Yes (Life-Threatening, Hospitalization)
  Sender: FDA-Public Use
  Company Number: FR-GLAXOSMITHKLINE-B0325075A

PATIENT
  Age: 58 Year
  Sex: Male

DRUGS (2)
  1. CLAMOXYL [Suspect]
     Indication: LYME DISEASE
     Dosage: 1G SINGLE DOSE
     Route: 042
     Dates: start: 20031215, end: 20031215
  2. DAFALGAN [Suspect]
     Indication: ARTHRALGIA
     Dosage: 500MG SINGLE DOSE
     Route: 048
     Dates: start: 20031215, end: 20031215

REACTIONS (1)
  - BRONCHOSPASM [None]
